FAERS Safety Report 10707569 (Version 1)
Quarter: 2015Q1

REPORT INFORMATION
  Report Type: Spontaneous
  Country: US (occurrence: US)
  Receive Date: 20150113
  Receipt Date: 20150113
  Transmission Date: 20150721
  Serious: Yes (Death)
  Sender: FDA-Public Use
  Company Number: US-BAYER-2015-002728

PATIENT
  Age: 38 Year
  Sex: Female

DRUGS (7)
  1. SERTRALINE [Suspect]
     Active Substance: SERTRALINE HYDROCHLORIDE
  2. DIPHENHYDRAMINE HYDROCHLORIDE. [Suspect]
     Active Substance: DIPHENHYDRAMINE HYDROCHLORIDE
  3. QUININE [Suspect]
     Active Substance: QUININE
  4. CODEINE [Suspect]
     Active Substance: CODEINE
  5. DOXYLAMINE [Suspect]
     Active Substance: DOXYLAMINE
  6. HEROIN [Suspect]
     Active Substance: DIACETYLMORPHINE
  7. COCAINE [Suspect]
     Active Substance: COCAINE

REACTIONS (1)
  - Drug abuse [Fatal]
